FAERS Safety Report 15856024 (Version 1)
Quarter: 2019Q1

REPORT INFORMATION
  Report Type: Report from Study
  Country: None (occurrence: CA)
  Receive Date: 20190123
  Receipt Date: 20190123
  Transmission Date: 20190417
  Serious: Yes (Other)
  Sender: FDA-Public Use
  Company Number: CA-ABBVIE-19S-028-2631368-00

PATIENT
  Age: 66 Year
  Sex: Male

DRUGS (1)
  1. LUPRON DEPOT [Suspect]
     Active Substance: LEUPROLIDE ACETATE
     Indication: PROSTATE CANCER
     Route: 030
     Dates: start: 20180521

REACTIONS (4)
  - Hot flush [Unknown]
  - Dizziness [Unknown]
  - Balance disorder [Unknown]
  - Chemotherapy [Unknown]

NARRATIVE: CASE EVENT DATE: 20181004
